FAERS Safety Report 11176421 (Version 4)
Quarter: 2015Q3

REPORT INFORMATION
  Report Type: Spontaneous
  Country: GB (occurrence: GB)
  Receive Date: 20150610
  Receipt Date: 20150812
  Transmission Date: 20151125
  Serious: Yes (Other)
  Sender: FDA-Public Use
  Company Number: GB-ROCHE-1578585

PATIENT
  Sex: Female

DRUGS (1)
  1. HERCEPTIN [Suspect]
     Active Substance: TRASTUZUMAB
     Indication: PRODUCT USED FOR UNKNOWN INDICATION
     Route: 058

REACTIONS (16)
  - Muscle spasms [Unknown]
  - Diabetes mellitus [Unknown]
  - Cough [Unknown]
  - Abdominal pain [Unknown]
  - Blood glucose abnormal [Unknown]
  - Menorrhagia [Unknown]
  - Myalgia [Unknown]
  - Menstruation irregular [Unknown]
  - Fatigue [Unknown]
  - Hypoglycaemia [Unknown]
  - Dizziness [Unknown]
  - Blood glucose increased [Unknown]
  - Syncope [Recovered/Resolved]
  - Rhinorrhoea [Unknown]
  - Polymenorrhoea [Unknown]
  - Hypoaesthesia [Unknown]
